FAERS Safety Report 19490614 (Version 4)
Quarter: 2022Q3

REPORT INFORMATION
  Report Type: Report from Study
  Country: US (occurrence: US)
  Receive Date: 20210705
  Receipt Date: 20220714
  Transmission Date: 20221027
  Serious: Yes (Other)
  Sender: FDA-Public Use
  Company Number: US-SANOFI-00543547

PATIENT
  Age: 73 Year
  Sex: Male

DRUGS (2)
  1. DUPILUMAB [Suspect]
     Active Substance: DUPILUMAB
     Indication: Nasal polyps
     Dosage: 300 MG, QOW
     Route: 058
     Dates: start: 20210406
  2. DUPIXENT [Suspect]
     Active Substance: DUPILUMAB
     Indication: Nasal polyps
     Dosage: 300 MG, QOW
     Route: 058
     Dates: start: 20210322

REACTIONS (10)
  - Neoplasm malignant [Not Recovered/Not Resolved]
  - Fatigue [Unknown]
  - Malaise [Unknown]
  - Hypoacusis [Unknown]
  - Swelling [Recovered/Resolved]
  - Weight increased [Recovered/Resolved]
  - Injection site pain [Recovered/Resolved]
  - Injection site swelling [Unknown]
  - Therapeutic response decreased [Unknown]
  - Product use in unapproved indication [Unknown]

NARRATIVE: CASE EVENT DATE: 20210101
